FAERS Safety Report 4409116-7 (Version None)
Quarter: 2004Q3

REPORT INFORMATION
  Report Type: 
  Country: None (occurrence: None)
  Receive Date: 20040727
  Receipt Date: 20040722
  Transmission Date: 20050211
  Serious: Yes (Hospitalization)
  Sender: FDA-Public Use
  Company Number: GB-MERCK-0407GBR00227

PATIENT
  Age: 80 Year
  Sex: Female
  Weight: 60 kg

DRUGS (13)
  1. ASPIRIN [Concomitant]
     Route: 048
  2. ATENOLOL [Concomitant]
     Route: 065
  3. CALCIUM CARBONATE AND CHOLECALCIFEROL [Concomitant]
     Route: 065
  4. CLOPIDOGREL BISULFATE [Concomitant]
     Route: 048
  5. ESTROGENS, CONJUGATED [Concomitant]
     Route: 065
  6. FUROSEMIDE [Concomitant]
     Route: 048
  7. LEVOTHYROXINE SODIUM [Concomitant]
     Route: 065
  8. NICARDIPINE HYDROCHLORIDE [Concomitant]
     Route: 048
  9. NICORANDIL [Concomitant]
     Route: 065
  10. PERINDOPRIL [Concomitant]
     Route: 065
  11. RAMIPRIL [Concomitant]
     Route: 065
  12. ZOCOR [Suspect]
     Indication: MYOCARDIAL ISCHAEMIA
     Route: 048
     Dates: start: 20031101, end: 20040401
  13. TIMOPTIC [Concomitant]
     Route: 047

REACTIONS (2)
  - MYOPATHY [None]
  - MYOSITIS [None]
